FAERS Safety Report 8580011-5 (Version None)
Quarter: 2012Q3

REPORT INFORMATION
  Report Type: 
  Country: None (occurrence: None)
  Receive Date: 20120808
  Receipt Date: 20120728
  Transmission Date: 20120928
  Serious: Yes (Hospitalization)
  Sender: FDA-Public Use
  Company Number: IT-CELGENEUS-083-20785-12073014

PATIENT

DRUGS (4)
  1. BACTRIM [Concomitant]
     Route: 048
  2. THALIDOMIDE [Suspect]
     Indication: MULTIPLE MYELOMA
     Dosage: 100 MILLIGRAM
     Route: 048
     Dates: start: 20111014, end: 20120510
  3. ASPIRIN [Concomitant]
     Dosage: 100 MILLIGRAM
     Route: 048
  4. LAMIVUDINE [Concomitant]
     Dosage: 100 MILLIGRAM
     Route: 065

REACTIONS (3)
  - PANCREATITIS ACUTE [None]
  - CHOLELITHIASIS [None]
  - CHOLECYSTITIS ACUTE [None]
